FAERS Safety Report 7483466-2 (Version None)
Quarter: 2011Q2

REPORT INFORMATION
  Report Type: 
  Country: None (occurrence: None)
  Receive Date: 20110517
  Receipt Date: 20110506
  Transmission Date: 20111010
  Serious: Yes (Hospitalization)
  Sender: FDA-Public Use
  Company Number: ES-JNJFOC-20110504720

PATIENT
  Age: 28 Year
  Sex: Female

DRUGS (2)
  1. PALIPERIDONE [Suspect]
     Indication: PSYCHOTIC DISORDER
     Route: 048
  2. RISPERIDONE [Suspect]
     Indication: PSYCHOTIC DISORDER
     Route: 030

REACTIONS (3)
  - TREATMENT NONCOMPLIANCE [None]
  - WEIGHT DECREASED [None]
  - THERAPEUTIC RESPONSE UNEXPECTED [None]
